FAERS Safety Report 7816552-5 (Version None)
Quarter: 2011Q4

REPORT INFORMATION
  Report Type: 
  Country: None (occurrence: None)
  Receive Date: 20111017
  Receipt Date: 20111012
  Transmission Date: 20120403
  Serious: Yes (Other)
  Sender: FDA-Public Use
  Company Number: US-PFIZER INC-2011224367

PATIENT
  Sex: Female

DRUGS (2)
  1. TRAZODONE HCL [Suspect]
     Indication: DEPRESSION
     Dosage: 225 MG, UNK
     Route: 048
     Dates: start: 20110801, end: 20110920
  2. EFFEXOR XR [Suspect]
     Dosage: UNK MG, UNK
     Route: 048

REACTIONS (2)
  - OESOPHAGEAL DISORDER [None]
  - DYSPHAGIA [None]
